FAERS Safety Report 5388509-8 (Version None)
Quarter: 2007Q3

REPORT INFORMATION
  Report Type: 
  Country: None (occurrence: None)
  Receive Date: 20070716
  Receipt Date: 20060621
  Transmission Date: 20080115
  Serious: No
  Sender: FDA-Public Use
  Company Number: US-BRISTOL-MYERS SQUIBB COMPANY-13419155

PATIENT
  Age: 91 Year
  Sex: Female

DRUGS (4)
  1. SINEMET CR [Suspect]
     Route: 048
     Dates: start: 20060425
  2. INSULIN [Concomitant]
  3. PROTONIX [Concomitant]
  4. AMANTADINE HCL [Concomitant]

REACTIONS (1)
  - DRUG ADMINISTRATION ERROR [None]
